FAERS Safety Report 13390631 (Version 1)
Quarter: 2017Q1

REPORT INFORMATION
  Report Type: Spontaneous
  Country: US (occurrence: US)
  Receive Date: 20170330
  Receipt Date: 20170330
  Transmission Date: 20170429
  Serious: Yes (Hospitalization, Other)
  Sender: FDA-Public Use
  Company Number: None

PATIENT
  Age: 66 Year
  Sex: Female
  Weight: 67.5 kg

DRUGS (3)
  1. IBU [Concomitant]
     Active Substance: IBUPROFEN
  2. HYDRALAZINE [Suspect]
     Active Substance: HYDRALAZINE HYDROCHLORIDE
     Indication: HYPERTENSION
     Route: 048
  3. CLONADINE PATCH [Concomitant]

REACTIONS (5)
  - Vascular headache [None]
  - Acute psychosis [None]
  - Poor quality sleep [None]
  - Tinnitus [None]
  - Insomnia [None]

NARRATIVE: CASE EVENT DATE: 20170101
